FAERS Safety Report 16986547 (Version 1)
Quarter: 2019Q4

REPORT INFORMATION
  Report Type: Spontaneous
  Country: US (occurrence: US)
  Receive Date: 20191103
  Receipt Date: 20191103
  Transmission Date: 20200122
  Serious: No
  Sender: FDA-Public Use
  Company Number: US-SHIRE-US201922441

PATIENT
  Age: 81 Year
  Sex: Female

DRUGS (1)
  1. GATTEX [Suspect]
     Active Substance: TEDUGLUTIDE\WATER
     Indication: SHORT-BOWEL SYNDROME
     Dosage: 2.35 MILLIGRAM, 1X/DAY:QD
     Route: 058
     Dates: start: 20190613

REACTIONS (6)
  - Food intolerance [Unknown]
  - Nausea [Unknown]
  - Back pain [Unknown]
  - Intervertebral disc protrusion [Unknown]
  - Hypophagia [Unknown]
  - Product dose omission [Recovered/Resolved]

NARRATIVE: CASE EVENT DATE: 20190706
